FAERS Safety Report 9236210 (Version 1)
Quarter: 2013Q2

REPORT INFORMATION
  Report Type: Spontaneous
  Country: US (occurrence: US)
  Receive Date: 20130417
  Receipt Date: 20130417
  Transmission Date: 20140414
  Serious: Yes (Other)
  Sender: FDA-Public Use
  Company Number: US-PFIZER INC-2013117036

PATIENT
  Age: 61 Year
  Sex: Male
  Weight: 77.1 kg

DRUGS (2)
  1. VIAGRA [Suspect]
     Indication: SEXUAL DYSFUNCTION
     Dosage: BY SPLITTING 100 MG TABLET IN HALF AS NEEDED
     Route: 048
     Dates: start: 2003
  2. HYDROCODONE [Concomitant]
     Indication: MUSCULOSKELETAL PAIN
     Dosage: 5/325 MG AS NEEDED (EVERY 4-6 HOURS)

REACTIONS (7)
  - Carpal tunnel syndrome [Recovering/Resolving]
  - Muscle injury [Recovering/Resolving]
  - Pain [Recovering/Resolving]
  - Activities of daily living impaired [Recovering/Resolving]
  - Joint injury [Recovering/Resolving]
  - Musculoskeletal disorder [Recovering/Resolving]
  - Bronchitis [Unknown]
